FAERS Safety Report 9525850 (Version 1)
Quarter: 2013Q3

REPORT INFORMATION
  Report Type: Spontaneous
  Country: US (occurrence: US)
  Receive Date: 20130916
  Receipt Date: 20130916
  Transmission Date: 20140515
  Serious: No
  Sender: FDA-Public Use
  Company Number: US-BIOGENIDEC-2013BI087139

PATIENT
  Sex: Female

DRUGS (1)
  1. AVONEX [Suspect]
     Indication: PRODUCT USED FOR UNKNOWN INDICATION
     Route: 030
     Dates: end: 20130802

REACTIONS (3)
  - Optic neuritis [Unknown]
  - Influenza like illness [Unknown]
  - Multiple sclerosis relapse [Unknown]
